FAERS Safety Report 13847058 (Version 16)
Quarter: 2018Q2

REPORT INFORMATION
  Report Type: Spontaneous
  Country: CA (occurrence: CA)
  Receive Date: 20170808
  Receipt Date: 20180618
  Transmission Date: 20180711
  Serious: Yes (Hospitalization, Other)
  Sender: FDA-Public Use
  Company Number: CA-CELLTRION INC.-2017CA009747

PATIENT

DRUGS (11)
  1. INFLECTRA [Suspect]
     Active Substance: INFLIXIMAB-DYYB
     Dosage: 5 MG/KG, CYCLIC, EVERY 6 WEEKS
     Route: 065
  2. DILAUDID [Concomitant]
     Active Substance: HYDROMORPHONE HYDROCHLORIDE
     Dosage: 2 MG, AS NEEDED
  3. MORPHINE [Concomitant]
     Active Substance: MORPHINE
     Dosage: 100 MG, TID
  4. INFLECTRA [Suspect]
     Active Substance: INFLIXIMAB-DYYB
     Dosage: 405 MG, CYCLIC THEN EVERY 8 WEEKS
     Route: 042
     Dates: start: 20180131
  5. METHOTREXATE. [Concomitant]
     Active Substance: METHOTREXATE
     Dosage: 25 MG, 1/WEEK
  6. PREDNISONE. [Concomitant]
     Active Substance: PREDNISONE
     Dosage: 5 MG, DAILY
  7. INFLECTRA [Suspect]
     Active Substance: INFLIXIMAB-DYYB
     Indication: PSORIATIC ARTHROPATHY
     Dosage: 320 MG, CYCLIC (EVERY 0, 2, 6 WEEKS, THEN EVERY 8 WEEKS)
     Route: 042
     Dates: start: 20170309, end: 20171201
  8. INFLECTRA [Suspect]
     Active Substance: INFLIXIMAB-DYYB
     Dosage: UNK
     Route: 042
     Dates: start: 20180522
  9. INFLECTRA [Suspect]
     Active Substance: INFLIXIMAB-DYYB
     Dosage: 5 MG/KG, CYCLIC, EVERY 8 WEEKS
     Route: 042
     Dates: start: 20180326
  10. FOLIC ACID. [Concomitant]
     Active Substance: FOLIC ACID
     Dosage: 5 MG, 1/WEEK
  11. MELOXICAM. [Concomitant]
     Active Substance: MELOXICAM
     Dosage: 7.5 MG, BID

REACTIONS (14)
  - Drug effect decreased [Unknown]
  - Cough [Recovered/Resolved]
  - Colitis [Unknown]
  - Inappropriate schedule of drug administration [Unknown]
  - Cataract [Unknown]
  - Pain [Recovering/Resolving]
  - Abdominal pain [Unknown]
  - Gastrointestinal oedema [Not Recovered/Not Resolved]
  - Dysphonia [Recovered/Resolved]
  - Panic attack [Unknown]
  - Malaise [Recovering/Resolving]
  - Infection [Recovered/Resolved]
  - C-reactive protein increased [Not Recovered/Not Resolved]
  - Weight increased [Unknown]

NARRATIVE: CASE EVENT DATE: 2017
